FAERS Safety Report 7433488-2 (Version None)
Quarter: 2011Q2

REPORT INFORMATION
  Report Type: 
  Country: None (occurrence: None)
  Receive Date: 20110422
  Receipt Date: 20110203
  Transmission Date: 20111010
  Serious: No
  Sender: FDA-Public Use
  Company Number: US-MUTUAL PHARMACEUTICAL COMPANY, INC.-CLCY20110012

PATIENT
  Sex: Male
  Weight: 77.18 kg

DRUGS (9)
  1. LEVOTHYROXINE SODIUM [Concomitant]
     Indication: HYPOTHYROIDISM
     Route: 048
  2. LASIX [Concomitant]
     Indication: CARDIAC FAILURE CONGESTIVE
     Route: 065
  3. COLCRYS [Suspect]
     Indication: GOUT
     Route: 048
     Dates: start: 20101227, end: 20110213
  4. PROBENECID [Concomitant]
     Indication: GOUT
     Route: 048
  5. LISINOPRIL [Concomitant]
     Indication: PRODUCT USED FOR UNKNOWN INDICATION
     Route: 048
  6. PINDOLOL 5 MG [Concomitant]
     Indication: PRODUCT USED FOR UNKNOWN INDICATION
     Route: 048
  7. FOLBIC [Concomitant]
     Indication: ANGINA PECTORIS
     Route: 048
  8. ISOSORBIDE MONONITRATE [Concomitant]
     Indication: PRODUCT USED FOR UNKNOWN INDICATION
     Route: 048
  9. VALIUM [Concomitant]
     Indication: ANXIETY
     Route: 048

REACTIONS (1)
  - DRUG INEFFECTIVE [None]
